FAERS Safety Report 6440139-2 (Version None)
Quarter: 2009Q4

REPORT INFORMATION
  Report Type: 
  Country: None (occurrence: None)
  Receive Date: 20091113
  Receipt Date: 20090211
  Transmission Date: 20100525
  Serious: No
  Sender: FDA-Public Use
  Company Number: A0768218A

PATIENT
  Age: 27 Year
  Sex: Female

DRUGS (3)
  1. COREG [Suspect]
     Indication: HYPERTENSION
     Dosage: 50MG PER DAY
     Route: 048
     Dates: start: 20050101
  2. INHALER [Concomitant]
     Indication: ASTHMA
  3. PROZAC [Concomitant]
     Dates: start: 20050101

REACTIONS (2)
  - ANXIETY [None]
  - DEPRESSION [None]
